FAERS Safety Report 9517547 (Version 1)
Quarter: 2013Q3

REPORT INFORMATION
  Report Type: Spontaneous
  Country: US (occurrence: US)
  Receive Date: 20130911
  Receipt Date: 20130911
  Transmission Date: 20140515
  Serious: No
  Sender: FDA-Public Use
  Company Number: US-BAYER-2013-109921

PATIENT
  Age: 75 Year
  Sex: Female

DRUGS (7)
  1. ALEVE CAPLET [Suspect]
     Indication: INFLAMMATION
     Dosage: 1 DF, PRN
     Dates: start: 2005
  2. BABY ASPIRIN [Concomitant]
  3. CENTRUM [Concomitant]
  4. HYDROCHLOROTHIAZIDE [Concomitant]
  5. B COMPLEX [B3,B6,B2,B1 HCL] [Concomitant]
  6. VITAMIN C [Concomitant]
  7. IRON [Concomitant]

REACTIONS (1)
  - Off label use [None]
